FAERS Safety Report 6805557-9 (Version None)
Quarter: 2010Q2

REPORT INFORMATION
  Report Type: 
  Country: None (occurrence: None)
  Receive Date: 20100628
  Receipt Date: 20080117
  Transmission Date: 20101027
  Serious: Yes (Other)
  Sender: FDA-Public Use
  Company Number: US-PFIZER INC-2008006036

PATIENT
  Sex: Female

DRUGS (4)
  1. GEODON [Suspect]
  2. ALL OTHER THERAPEUTIC PRODUCTS [Suspect]
  3. TRILEPTAL [Suspect]
  4. METFORMIN HCL [Concomitant]
     Indication: BLOOD GLUCOSE INCREASED

REACTIONS (1)
  - DIABETES MELLITUS [None]
